FAERS Safety Report 6865242-4 (Version None)
Quarter: 2010Q3

REPORT INFORMATION
  Report Type: 
  Country: None (occurrence: None)
  Receive Date: 20100721
  Receipt Date: 20080414
  Transmission Date: 20110219
  Serious: No
  Sender: FDA-Public Use
  Company Number: US-PFIZER INC-2008035312

PATIENT
  Sex: Male
  Weight: 90.9 kg

DRUGS (10)
  1. CHANTIX [Suspect]
     Indication: SMOKING CESSATION THERAPY
     Dates: start: 20080101, end: 20080101
  2. MORPHINE SULFATE [Concomitant]
  3. PROSCAR [Concomitant]
  4. FUROSEMIDE [Concomitant]
  5. GEMFIBROZIL [Concomitant]
  6. CARDIZEM [Concomitant]
  7. HYTRIN [Concomitant]
  8. LISINOPRIL [Concomitant]
  9. TEMAZEPAM [Concomitant]
  10. LYRICA [Concomitant]

REACTIONS (2)
  - LIP DISCOLOURATION [None]
  - RASH MACULAR [None]
